FAERS Safety Report 7352400-8 (Version None)
Quarter: 2011Q1

REPORT INFORMATION
  Report Type: 
  Country: None (occurrence: None)
  Receive Date: 20110315
  Receipt Date: 20110228
  Transmission Date: 20110831
  Serious: Yes (Hospitalization)
  Sender: FDA-Public Use
  Company Number: GB-TEVA-269945ISR

PATIENT
  Age: 78 Year
  Sex: Female
  Weight: 72.65 kg

DRUGS (2)
  1. PREDNISOLONE [Suspect]
     Dates: start: 20110107, end: 20110202
  2. PREDNISOLONE [Suspect]
     Route: 048
     Dates: end: 20110207

REACTIONS (3)
  - ACUTE MYOCARDIAL INFARCTION [None]
  - ANGINA UNSTABLE [None]
  - MYOCARDIAL ISCHAEMIA [None]
